FAERS Safety Report 24935154 (Version 1)
Quarter: 2025Q1

REPORT INFORMATION
  Report Type: Spontaneous
  Country: US (occurrence: US)
  Receive Date: 20250206
  Receipt Date: 20250206
  Transmission Date: 20250409
  Serious: Yes (Hospitalization, Other)
  Sender: JOHNSON AND JOHNSON
  Company Number: US-JNJFOC-20250173717

PATIENT
  Sex: Male

DRUGS (1)
  1. TALQUETAMAB [Suspect]
     Active Substance: TALQUETAMAB
     Indication: Product used for unknown indication
     Route: 065

REACTIONS (8)
  - Pyrexia [Unknown]
  - Choking [Unknown]
  - Spinal compression fracture [Unknown]
  - Clostridium difficile infection [Unknown]
  - Bone disorder [Unknown]
  - Asthenia [Unknown]
  - Dysgeusia [Unknown]
  - Weight decreased [Unknown]
